FAERS Safety Report 8694448 (Version 3)
Quarter: 2014Q1

REPORT INFORMATION
  Report Type: Report from Study
  Country: AR (occurrence: AR)
  Receive Date: 20120731
  Receipt Date: 20140121
  Transmission Date: 20141002
  Serious: Yes (Other)
  Sender: FDA-Public Use
  Company Number: AR-ROCHE-1094339

PATIENT
  Sex: Female

DRUGS (1)
  1. RANIBIZUMAB [Suspect]
     Indication: MACULOPATHY
     Route: 050
     Dates: start: 2010, end: 2012

REACTIONS (5)
  - Retinal neovascularisation [Recovered/Resolved]
  - Retinal detachment [Recovered/Resolved]
  - Maculopathy [Recovered/Resolved]
  - Lacrimation increased [Recovered/Resolved]
  - Visual impairment [Recovered/Resolved]
